FAERS Safety Report 14222015 (Version 1)
Quarter: 2017Q4

REPORT INFORMATION
  Report Type: Spontaneous
  Country: MX (occurrence: MX)
  Receive Date: 20171124
  Receipt Date: 20171124
  Transmission Date: 20180321
  Serious: Yes (Other)
  Sender: FDA-Public Use
  Company Number: MX-SUN PHARMACEUTICAL INDUSTRIES LTD-2017R1-149601

PATIENT
  Age: 77 Year
  Sex: Male

DRUGS (3)
  1. CEPHALEXIN. [Concomitant]
     Active Substance: CEPHALEXIN
     Indication: PYODERMA GANGRENOSUM
     Dosage: 500 MG, QID
     Route: 065
  2. PREDNISONE. [Suspect]
     Active Substance: PREDNISONE
     Indication: PYODERMA GANGRENOSUM
     Dosage: 15 MG, DAILY
     Route: 048
  3. TRIAMCINOLONE [Suspect]
     Active Substance: TRIAMCINOLONE
     Indication: PYODERMA GANGRENOSUM
     Dosage: UNK
     Route: 026

REACTIONS (4)
  - Skin ulcer [Recovered/Resolved]
  - Skin infection [Recovered/Resolved]
  - Drug ineffective [Unknown]
  - Escherichia infection [Unknown]
